FAERS Safety Report 14228577 (Version 2)
Quarter: 2017Q4

REPORT INFORMATION
  Report Type: Report from Study
  Country: None (occurrence: NL)
  Receive Date: 20171128
  Receipt Date: 20171206
  Transmission Date: 20180321
  Serious: Yes (Other)
  Sender: FDA-Public Use
  Company Number: NL-ABBVIE-17K-114-2174889-00

PATIENT
  Sex: Female

DRUGS (1)
  1. DUODOPA [Suspect]
     Active Substance: CARBIDOPA\LEVODOPA
     Indication: PARKINSON^S DISEASE
     Dosage: MD: 3.5?CD: 2.9?ED: 3?CND: 1.6
     Route: 050
     Dates: start: 20090629

REACTIONS (2)
  - Breast cancer metastatic [Not Recovered/Not Resolved]
  - Drug ineffective [Not Recovered/Not Resolved]
